FAERS Safety Report 9257062 (Version 2)
Quarter: 2013Q2

REPORT INFORMATION
  Report Type: Spontaneous
  Country: US (occurrence: None)
  Receive Date: 20130424
  Receipt Date: 20130604
  Transmission Date: 20140414
  Serious: Yes (Death, Other)
  Sender: FDA-Public Use
  Company Number: ADR-2013-00691

PATIENT
  Age: 5 Year
  Sex: Male

DRUGS (1)
  1. GABLOFEN - 2000 MCG/ML [Suspect]
     Indication: MUSCLE SPASTICITY

REACTIONS (2)
  - Septic shock [None]
  - Device leakage [None]
